FAERS Safety Report 21275162 (Version 1)
Quarter: 2022Q3

REPORT INFORMATION
  Report Type: Spontaneous
  Country: GB (occurrence: GB)
  Receive Date: 20220831
  Receipt Date: 20220831
  Transmission Date: 20221027
  Serious: Yes (Other)
  Sender: FDA-Public Use
  Company Number: GB-ANIPHARMA-2022-UK-000208

PATIENT
  Age: 25 Year
  Sex: Female

DRUGS (3)
  1. IBUPROFEN [Suspect]
     Active Substance: IBUPROFEN
     Indication: Back pain
  2. CODEINE [Suspect]
     Active Substance: CODEINE
     Indication: Back pain
  3. DIAZEPAM [Suspect]
     Active Substance: DIAZEPAM
     Indication: Back pain

REACTIONS (1)
  - Acute generalised exanthematous pustulosis [Recovered/Resolved]
